FAERS Safety Report 8026920-7 (Version None)
Quarter: 2012Q1

REPORT INFORMATION
  Report Type: 
  Country: None (occurrence: None)
  Receive Date: 20120103
  Receipt Date: 20111222
  Transmission Date: 20120608
  Serious: Yes (Life-Threatening, Hospitalization)
  Sender: FDA-Public Use
  Company Number: 2011SP059312

PATIENT
  Age: 68 Year
  Sex: Male

DRUGS (6)
  1. LOVENOX [Concomitant]
  2. PERMIXON [Concomitant]
  3. TEMODAL [Suspect]
     Indication: PANCREATIC CARCINOMA
     Dosage: PO, PO
     Route: 048
     Dates: start: 20111001
  4. TEMODAL [Suspect]
     Indication: PANCREATIC CARCINOMA
     Dosage: PO, PO
     Route: 048
     Dates: start: 20111031, end: 20111104
  5. XELODA [Suspect]
     Indication: PANCREATIC CARCINOMA
     Dosage: PO, 1300 MG; BID; PO
     Dates: start: 20110924
  6. XELODA [Suspect]
     Indication: PANCREATIC CARCINOMA
     Dosage: PO, 1300 MG; BID; PO
     Dates: start: 20111024, end: 20111104

REACTIONS (4)
  - CARDIO-RESPIRATORY ARREST [None]
  - VOMITING [None]
  - VENTRICULAR FIBRILLATION [None]
  - ATRIOVENTRICULAR BLOCK [None]
